FAERS Safety Report 5815754-7 (Version None)
Quarter: 2008Q3

REPORT INFORMATION
  Report Type: 
  Country: None (occurrence: None)
  Receive Date: 20080721
  Receipt Date: 20080709
  Transmission Date: 20090109
  Serious: Yes (Hospitalization, Other)
  Sender: FDA-Public Use
  Company Number: JP-NOVOPROD-249529

PATIENT
  Age: 77 Year
  Sex: Male
  Weight: 98 kg

DRUGS (20)
  1. NOVOLIN R [Suspect]
     Indication: INSULIN-REQUIRING TYPE 2 DIABETES MELLITUS
     Route: 058
     Dates: start: 20031101, end: 20050712
  2. NOVOLIN R [Suspect]
     Dates: start: 20051212
  3. INNOLET 30R CHU [Suspect]
     Indication: INSULIN-REQUIRING TYPE 2 DIABETES MELLITUS
     Route: 058
     Dates: start: 20030101, end: 20031001
  4. NOVORAPID 30 MIX CHU FLEXPEN [Suspect]
     Dosage: 54 IU, QD
     Route: 058
     Dates: start: 20050713, end: 20051102
  5. NOVOLIN N [Suspect]
     Indication: INSULIN-REQUIRING TYPE 2 DIABETES MELLITUS
     Route: 058
     Dates: start: 20051103, end: 20051107
  6. NOVOLIN N [Suspect]
     Dates: start: 20051212
  7. NOVORAPID CHU FLEXPEN [Suspect]
     Dosage: UNK, UNK
     Route: 058
     Dates: start: 20051103, end: 20051205
  8. BASEN [Concomitant]
     Dosage: .3 MG, UNK
     Route: 048
     Dates: start: 20051103
  9. AMARYL [Concomitant]
     Dosage: 1-6 MG
     Route: 048
     Dates: start: 20051205, end: 20051211
  10. LASIX [Concomitant]
     Dosage: 20 MG, UNK
     Route: 048
     Dates: start: 20050401
  11. MELBIN [Concomitant]
     Dosage: 7.5 MG, UNK
     Dates: start: 20040101, end: 20050401
  12. ASPIRIN [Concomitant]
     Dosage: 40 MG, UNK
     Route: 048
     Dates: start: 20031001
  13. TICLOPIDINE HCL [Concomitant]
     Dosage: 150 MG, UNK
     Dates: start: 20031001
  14. CARVEDILOL [Concomitant]
     Dosage: 10 MG, UNK
     Route: 048
     Dates: start: 20031001
  15. FAMOTIDINE [Concomitant]
     Dosage: 20 MG, UNK
     Route: 048
     Dates: start: 20031001
  16. VASOLAN [Concomitant]
     Dosage: 120 MG, UNK
     Route: 048
     Dates: start: 20050701
  17. FIRSTCIN [Concomitant]
     Dosage: 2 G, UNK
     Route: 042
     Dates: start: 20051111, end: 20051115
  18. CRAVIT [Concomitant]
     Dosage: 300 MG, UNK
     Route: 048
     Dates: start: 20051126, end: 20051129
  19. SUPLATAST TOSILATE [Concomitant]
     Dosage: 300 MG, UNK
     Dates: start: 20051129
  20. KETOTIPHAR [Concomitant]
     Indication: PRURITUS
     Dosage: 1 MG, QD

REACTIONS (4)
  - ANTI-INSULIN ANTIBODY POSITIVE [None]
  - DRUG HYPERSENSITIVITY [None]
  - HYPERGLYCAEMIA [None]
  - PRURITUS [None]
